FAERS Safety Report 7782286-9 (Version None)
Quarter: 2011Q3

REPORT INFORMATION
  Report Type: 
  Country: None (occurrence: None)
  Receive Date: 20110927
  Receipt Date: 20110923
  Transmission Date: 20111222
  Serious: Yes (Hospitalization, Other)
  Sender: FDA-Public Use
  Company Number: GB-MERCK-1109USA00646

PATIENT
  Age: 63 Year
  Sex: Female

DRUGS (9)
  1. LENALIDOMIDE [Suspect]
     Indication: MULTIPLE MYELOMA
     Route: 065
  2. LENALIDOMIDE [Suspect]
     Dosage: 21 DAYS PER MONTH
     Route: 065
     Dates: start: 20100701
  3. DECADRON [Suspect]
     Dosage: IN TWO 4 DAY CYCLES
     Route: 048
     Dates: end: 20100701
  4. VELCADE [Suspect]
     Indication: MULTIPLE MYELOMA
     Route: 065
  5. LENALIDOMIDE [Suspect]
     Dosage: FOR 21 DAYS (11 TABLETS OF 5 MG PER MONTH)
     Route: 065
  6. LENALIDOMIDE [Suspect]
     Dosage: 21 DAYS PER MONTH
     Route: 065
     Dates: start: 20090401
  7. LENALIDOMIDE [Suspect]
     Route: 065
  8. LENALIDOMIDE [Suspect]
     Route: 065
  9. DECADRON [Suspect]
     Indication: MULTIPLE MYELOMA
     Route: 048

REACTIONS (3)
  - PANCYTOPENIA [None]
  - HAEMORRHAGIC DIATHESIS [None]
  - POLYNEUROPATHY [None]
